FAERS Safety Report 4752636-6 (Version None)
Quarter: 2005Q3

REPORT INFORMATION
  Report Type: 
  Country: None (occurrence: None)
  Receive Date: 20050825
  Receipt Date: 20050602
  Transmission Date: 20060218
  Serious: Yes (Life-Threatening, Other)
  Sender: FDA-Public Use
  Company Number: 200511514EU

PATIENT
  Age: 58 Year
  Sex: Male

DRUGS (5)
  1. NICORANDIL [Suspect]
  2. GLIBENCLAMIDE [Suspect]
     Dosage: ROUTE: NASOGASTRIC
     Route: 050
  3. ASPIRIN [Concomitant]
     Dosage: DOSE: UNK
  4. CORONARY VASODILATORS [Concomitant]
     Dosage: DOSE: UNK
  5. BETA BLOCKING AGENTS [Concomitant]
     Dosage: DOSE: UNK

REACTIONS (7)
  - ANASTOMOTIC LEAK [None]
  - BRADYCARDIA [None]
  - DRUG INEFFECTIVE [None]
  - HYPERKALAEMIA [None]
  - HYPOTENSION [None]
  - POST PROCEDURAL HAEMORRHAGE [None]
  - THERAPEUTIC RESPONSE UNEXPECTED [None]
